FAERS Safety Report 9237179 (Version 1)
Quarter: 2013Q2

REPORT INFORMATION
  Report Type: Report from Study
  Country: US (occurrence: US)
  Receive Date: 20130417
  Receipt Date: 20130417
  Transmission Date: 20140414
  Serious: No
  Sender: FDA-Public Use
  Company Number: US-009507513-1303USA006081

PATIENT
  Sex: Male

DRUGS (3)
  1. REBETOL [Suspect]
     Indication: CHRONIC HEPATITIS C
     Dosage: 1200 MG PER DAY DIVIDED DOSE
     Dates: start: 20120306, end: 20120619
  2. VICTRELIS [Suspect]
     Indication: CHRONIC HEPATITIS C
     Dosage: UNK
     Dates: start: 20120402, end: 201206
  3. PEGASYS [Suspect]
     Indication: CHRONIC HEPATITIS C
     Dosage: 180 MICROGRAM, QW
     Dates: start: 20120306, end: 20120619

REACTIONS (4)
  - Initial insomnia [Recovering/Resolving]
  - Rash [Recovering/Resolving]
  - Influenza [Recovered/Resolved]
  - Drug tolerance [Unknown]
